FAERS Safety Report 11079129 (Version 1)
Quarter: 2015Q2

REPORT INFORMATION
  Report Type: Spontaneous
  Country: PL (occurrence: PL)
  Receive Date: 20150430
  Receipt Date: 20150430
  Transmission Date: 20150821
  Serious: Yes (Death, Hospitalization)
  Sender: FDA-Public Use
  Company Number: PL-B.I. PHARMACEUTICALS,INC./RIDGEFIELD-2015-BI-23141BI

PATIENT
  Age: 79 Year
  Sex: Female

DRUGS (31)
  1. SIOFOR [Concomitant]
     Active Substance: METFORMIN HYDROCHLORIDE
     Indication: DIABETES MELLITUS
     Dosage: 1000 MG
     Route: 048
     Dates: start: 201205
  2. HUMULIN R [Concomitant]
     Active Substance: INSULIN HUMAN
     Indication: DIABETES MELLITUS
     Dosage: 54 U
     Route: 058
     Dates: start: 201206
  3. MILURIT [Concomitant]
     Active Substance: ALLOPURINOL
     Indication: HYPOTHYROIDISM
     Dosage: 100 MG
     Route: 048
     Dates: start: 2010
  4. OXIDIL [Suspect]
     Active Substance: CEFTRIAXONE SODIUM
     Indication: CHRONIC OBSTRUCTIVE PULMONARY DISEASE
     Dosage: 10 MCG
     Route: 055
     Dates: start: 201502, end: 20150320
  5. NYSTATYNA TEVA [Suspect]
     Active Substance: NYSTATIN
     Indication: PROPHYLAXIS
     Route: 048
     Dates: start: 201502
  6. ACURENAL [Concomitant]
     Indication: HYPERTENSION
     Dosage: 20 MG
     Route: 048
  7. MILURIT [Concomitant]
     Active Substance: ALLOPURINOL
     Indication: HYPERURICAEMIA
  8. VENTOLIN [Suspect]
     Active Substance: ALBUTEROL SULFATE
     Indication: CHRONIC OBSTRUCTIVE PULMONARY DISEASE
     Dosage: ROUTE: NEBULIZATION
     Route: 050
     Dates: start: 201502, end: 20150320
  9. AREPLEX [Concomitant]
     Indication: ACUTE MYOCARDIAL INFARCTION
  10. POLPRIL [Concomitant]
     Active Substance: RAMIPRIL
     Indication: HYPERTENSION
     Route: 048
     Dates: start: 201502, end: 20150320
  11. NITRENDYPINA [Concomitant]
     Indication: HYPERTENSION
     Route: 048
     Dates: start: 201502, end: 20150320
  12. MIFLONIDE [Suspect]
     Active Substance: BUDESONIDE
     Indication: CHRONIC OBSTRUCTIVE PULMONARY DISEASE
     Dosage: 800 MG
     Route: 055
     Dates: start: 201502, end: 20150320
  13. PREDUCTAL MR [Concomitant]
     Active Substance: TRIMETAZIDINE DIHYDROCHLORIDE
     Indication: MYOCARDIAL ISCHAEMIA
     Dosage: 70 MG
     Route: 048
     Dates: start: 201303
  14. SPIRIVA [Concomitant]
     Active Substance: TIOTROPIUM BROMIDE MONOHYDRATE
     Indication: CHRONIC OBSTRUCTIVE PULMONARY DISEASE
     Route: 055
     Dates: start: 2010
  15. HUMULIN N [Concomitant]
     Active Substance: INSULIN HUMAN
     Indication: DIABETES MELLITUS
     Dosage: 30 U
     Route: 058
     Dates: start: 201206
  16. CONCORAM [Concomitant]
     Indication: MYOCARDIAL ISCHAEMIA
     Dosage: DOSE PER APPLICATION AND DAILY DOSE: 10/5 MG
     Route: 048
     Dates: start: 2013
  17. ACARD [Concomitant]
     Active Substance: ASPIRIN
     Indication: ACUTE MYOCARDIAL INFARCTION
  18. IPP [Concomitant]
     Active Substance: PANTOPRAZOLE SODIUM
     Indication: PROPHYLAXIS
     Dosage: 20 MG
     Route: 048
     Dates: start: 201503, end: 20150320
  19. LINAGLIPTIN [Concomitant]
     Active Substance: LINAGLIPTIN
     Indication: TYPE 2 DIABETES MELLITUS
     Route: 048
     Dates: start: 20140227, end: 20150319
  20. DOPAMINA [Concomitant]
     Indication: GENERAL SYMPTOM
     Dosage: 200 MG
     Route: 042
     Dates: start: 201503, end: 20150320
  21. MORFINUM [Concomitant]
     Indication: GENERAL SYMPTOM
     Dosage: 7.5 MG
     Route: 058
     Dates: start: 201503, end: 20150320
  22. ATROVENT [Suspect]
     Active Substance: IPRATROPIUM BROMIDE
     Indication: CHRONIC OBSTRUCTIVE PULMONARY DISEASE
     Dosage: ROUTE: NEBULIZATION
     Route: 050
     Dates: start: 201502, end: 20150320
  23. AREPLEX [Concomitant]
     Indication: ACUTE MYOCARDIAL INFARCTION
     Dosage: 75 MG
     Route: 048
     Dates: start: 201303
  24. MONONIT [Concomitant]
     Indication: MYOCARDIAL ISCHAEMIA
     Dosage: 60 MG
     Route: 048
     Dates: start: 201303
  25. ATROX [Concomitant]
     Indication: HYPERLIPIDAEMIA
     Dosage: 40 MG
     Route: 048
     Dates: start: 201303
  26. ATROX [Concomitant]
     Indication: DYSLIPIDAEMIA
  27. EUTHYROX [Concomitant]
     Active Substance: LEVOTHYROXINE SODIUM
     Indication: HYPOTHYROIDISM
     Dosage: DOSE PER APPLICATION AND DAILY DOSE: 75 UG
     Route: 048
     Dates: start: 2010
  28. METOPROLOL TARTRATE. [Concomitant]
     Active Substance: METOPROLOL TARTRATE
     Indication: MYOCARDIAL ISCHAEMIA
     Dosage: 50 MG
     Route: 048
     Dates: start: 201502, end: 20150320
  29. ACARD [Concomitant]
     Active Substance: ASPIRIN
     Indication: CORONARY ARTERY DISEASE
     Dosage: 75 MG
     Route: 048
     Dates: start: 2010
  30. FORADIL [Concomitant]
     Active Substance: FORMOTEROL FUMARATE
     Indication: CHRONIC OBSTRUCTIVE PULMONARY DISEASE
     Route: 055
     Dates: start: 2010
  31. AMLODIPINE [Concomitant]
     Active Substance: AMLODIPINE BESYLATE
     Indication: HYPERTENSION
     Route: 048
     Dates: start: 201502, end: 20150320

REACTIONS (1)
  - Pneumonia [Fatal]

NARRATIVE: CASE EVENT DATE: 20150216
